FAERS Safety Report 24965783 (Version 1)
Quarter: 2025Q1

REPORT INFORMATION
  Report Type: Spontaneous
  Country: JP (occurrence: JP)
  Receive Date: 20250213
  Receipt Date: 20250213
  Transmission Date: 20250408
  Serious: Yes (Other)
  Sender: DERMAVANT SCIENCES
  Company Number: JP-JT-EVA202500141Dermavant Sciences Inc.

PATIENT
  Age: 53 Year
  Sex: Female

DRUGS (3)
  1. VTAMA [Suspect]
     Active Substance: TAPINAROF
     Indication: Psoriasis
     Route: 003
     Dates: start: 20241125, end: 20241207
  2. TIGASON [Concomitant]
     Route: 048
  3. BETAMETHASONE DIPROPIONATE\CALCIPOTRIENE MONOHYDRATE [Concomitant]
     Active Substance: BETAMETHASONE DIPROPIONATE\CALCIPOTRIENE MONOHYDRATE
     Route: 003

REACTIONS (1)
  - Cellulitis [Recovered/Resolved]

NARRATIVE: CASE EVENT DATE: 20241207
